FAERS Safety Report 17019066 (Version 1)
Quarter: 2019Q4

REPORT INFORMATION
  Report Type: Spontaneous
  Country: FI (occurrence: FI)
  Receive Date: 20191112
  Receipt Date: 20191112
  Transmission Date: 20200122
  Serious: Yes (Life-Threatening)
  Sender: FDA-Public Use
  Company Number: FI-SA-2019SA307149

PATIENT
  Age: 48 Year
  Sex: Female

DRUGS (15)
  1. DEXAMETASON [DEXAMETHASONE] [Concomitant]
     Active Substance: DEXAMETHASONE
     Dosage: UNK UNK, PRN
     Dates: start: 20190320
  2. DUROGESIC [Concomitant]
     Active Substance: FENTANYL
     Dates: start: 20190905
  3. AMLODIPIN ORION [AMLODIPINE BESILATE] [Concomitant]
     Dosage: 10 MG, QD
     Dates: start: 20190513
  4. CANDESARTAN ACTAVIS [Concomitant]
     Active Substance: CANDESARTAN
     Dosage: 8 MG, QD
     Dates: start: 20190905
  5. PRIMPERAN [Concomitant]
     Active Substance: METOCLOPRAMIDE HYDROCHLORIDE
     Dosage: UNK UNK, PRN
     Dates: start: 20190320
  6. VI-SIBLIN [PLANTAGO OVATA] [Concomitant]
     Dosage: UNK UNK, PRN
     Dates: start: 20190304
  7. ABSTRAL [Concomitant]
     Active Substance: FENTANYL CITRATE
     Dosage: 900 UG, PRN
     Dates: start: 20190925
  8. PANADOL FORTE [PARACETAMOL] [Concomitant]
     Dates: start: 20170922
  9. OXYNORM [Concomitant]
     Active Substance: OXYCODONE HYDROCHLORIDE
     Dosage: UNK UNK, PRN
     Dates: start: 20190823
  10. PEGORION [Concomitant]
     Active Substance: POLYETHYLENE GLYCOL 4000
     Dosage: UNK UNK, PRN
     Dates: start: 20190311
  11. GRANISETRON STADA [Concomitant]
     Dosage: UNK UNK, PRN
     Dates: start: 20190320
  12. CAPECITABINE ORION [Concomitant]
     Dates: start: 20190911
  13. XYLOCAIN [LIDOCAINE HYDROCHLORIDE] [Concomitant]
     Active Substance: LIDOCAINE HYDROCHLORIDE
     Dates: start: 20190923
  14. OXALIPLATIN. [Suspect]
     Active Substance: OXALIPLATIN
     Indication: NEOPLASM MALIGNANT
     Dosage: 190 MG, QD
     Route: 042
     Dates: start: 20191015, end: 20191015
  15. OPAMOX [Concomitant]
     Active Substance: OXAZEPAM
     Dosage: UNK UNK, PRN
     Dates: start: 20190925

REACTIONS (5)
  - Chest discomfort [Recovered/Resolved]
  - Palpitations [Recovered/Resolved]
  - Blood pressure decreased [Recovered/Resolved]
  - Hyperhidrosis [Recovered/Resolved]
  - Erythema [Recovered/Resolved]

NARRATIVE: CASE EVENT DATE: 20191015
